FAERS Safety Report 24899709 (Version 4)
Quarter: 2025Q4

REPORT INFORMATION
  Report Type: Spontaneous
  Country: US (occurrence: US)
  Receive Date: 20250129
  Receipt Date: 20251231
  Transmission Date: 20260117
  Serious: No
  Sender: BAUSCH AND LOMB
  Company Number: US-BAUSCHBL-2025BNL001065

PATIENT
  Age: 86 Year
  Sex: Female

DRUGS (4)
  1. XIIDRA [Suspect]
     Active Substance: LIFITEGRAST
     Indication: Dry eye
     Dosage: 1 DROP TWICE DAILY IN EACH EYE
     Route: 047
     Dates: start: 20250101
  2. XIIDRA [Suspect]
     Active Substance: LIFITEGRAST
  3. XIIDRA [Suspect]
     Active Substance: LIFITEGRAST
  4. SOOTHE XP [Concomitant]
     Active Substance: LIGHT MINERAL OIL\MINERAL OIL
     Indication: Product used for unknown indication

REACTIONS (13)
  - Foreign body sensation in eyes [Unknown]
  - Dry eye [Unknown]
  - Lacrimation increased [Unknown]
  - Ocular discomfort [Unknown]
  - Eye irritation [Unknown]
  - Fine motor skill dysfunction [Unknown]
  - Product use complaint [Unknown]
  - Product dose omission in error [Unknown]
  - Exposure via skin contact [Unknown]
  - Accidental exposure to product [Unknown]
  - Product container issue [Unknown]
  - Insurance issue [Unknown]
  - Wrong dose [Unknown]

NARRATIVE: CASE EVENT DATE: 20250101
